FAERS Safety Report 7648315-8 (Version None)
Quarter: 2011Q3

REPORT INFORMATION
  Report Type: 
  Country: None (occurrence: None)
  Receive Date: 20110801
  Receipt Date: 20110725
  Transmission Date: 20111222
  Serious: Yes (Hospitalization)
  Sender: FDA-Public Use
  Company Number: US-ABBOTT-11P-163-0841398-00

PATIENT
  Sex: Female
  Weight: 46.308 kg

DRUGS (3)
  1. HUMIRA [Suspect]
     Dates: start: 20110601, end: 20110701
  2. HUMIRA [Suspect]
     Indication: CROHN'S DISEASE
     Dates: start: 20101201, end: 20110601
  3. HUMIRA [Suspect]

REACTIONS (10)
  - VOMITING [None]
  - GALLBLADDER ENLARGEMENT [None]
  - DRUG DOSE OMISSION [None]
  - URINARY TRACT INFECTION [None]
  - DIARRHOEA [None]
  - FREQUENT BOWEL MOVEMENTS [None]
  - CROHN'S DISEASE [None]
  - ABDOMINAL PAIN [None]
  - GASTROINTESTINAL INFLAMMATION [None]
  - TREATMENT NONCOMPLIANCE [None]
